FAERS Safety Report 21505617 (Version 1)
Quarter: 2022Q4

REPORT INFORMATION
  Report Type: Report from Study
  Country: US (occurrence: US)
  Receive Date: 20221026
  Receipt Date: 20221026
  Transmission Date: 20230113
  Serious: No
  Sender: FDA-Public Use
  Company Number: US-BIOVITRUM-2022US02657

PATIENT
  Sex: Male

DRUGS (2)
  1. KINERET [Suspect]
     Active Substance: ANAKINRA
     Indication: Rheumatoid arthritis
     Dates: start: 20220213
  2. KINERET [Suspect]
     Active Substance: ANAKINRA
     Dosage: 100MG/0.67ML
     Dates: start: 20220203

REACTIONS (9)
  - Skin burning sensation [Unknown]
  - Peripheral swelling [Unknown]
  - Musculoskeletal stiffness [Unknown]
  - Rib fracture [Unknown]
  - Chest pain [Unknown]
  - Orthopnoea [Unknown]
  - Urticaria [Unknown]
  - Injection site pruritus [Unknown]
  - Drug ineffective [Unknown]
